FAERS Safety Report 4388117-1 (Version None)
Quarter: 2004Q2

REPORT INFORMATION
  Report Type: 
  Country: None (occurrence: None)
  Receive Date: 20040629
  Receipt Date: 20040629
  Transmission Date: 20050107
  Serious: Yes (Hospitalization)
  Sender: FDA-Public Use
  Company Number: None

PATIENT
  Age: 89 Year

DRUGS (3)
  1. REMERON [Suspect]
     Indication: INSOMNIA
     Dosage: 15 MG AT BEDTIME ORAL
     Route: 048
     Dates: start: 20040617, end: 20040617
  2. TRAZODONE HCL [Concomitant]
  3. LORAZEPAM [Concomitant]

REACTIONS (4)
  - CONFUSIONAL STATE [None]
  - DYSARTHRIA [None]
  - SWOLLEN TONGUE [None]
  - URINARY RETENTION [None]
